FAERS Safety Report 17516695 (Version 1)
Quarter: 2020Q1

REPORT INFORMATION
  Report Type: Spontaneous
  Country: DE (occurrence: DE)
  Receive Date: 20200309
  Receipt Date: 20200309
  Transmission Date: 20200409
  Serious: Yes (Other)
  Sender: FDA-Public Use
  Company Number: NVSC2020DE011775

PATIENT
  Sex: Female
  Weight: 56 kg

DRUGS (9)
  1. ILARIS [Suspect]
     Active Substance: CANAKINUMAB
     Dosage: 150 MG (EVERY 8 WEEKS)
     Route: 065
     Dates: start: 201904
  2. ILARIS [Suspect]
     Active Substance: CANAKINUMAB
     Dosage: 600 MG (ONCE)
     Route: 065
     Dates: start: 201911, end: 201911
  3. ILARIS [Suspect]
     Active Substance: CANAKINUMAB
     Indication: CRYOPYRIN ASSOCIATED PERIODIC SYNDROME
     Dosage: 150 MG (EVERY 8 WEEKS)
     Route: 065
     Dates: start: 201904
  4. ILARIS [Suspect]
     Active Substance: CANAKINUMAB
     Dosage: 150 MG (EVERY 8 WEEKS)
     Route: 065
     Dates: start: 201904
  5. ILARIS [Suspect]
     Active Substance: CANAKINUMAB
     Dosage: 300 MG (EVERY 8 WEEKS)
     Route: 065
     Dates: end: 201911
  6. ILARIS [Suspect]
     Active Substance: CANAKINUMAB
     Dosage: 600 MG (ONCE)
     Route: 065
     Dates: start: 201911, end: 201911
  7. ILARIS [Suspect]
     Active Substance: CANAKINUMAB
     Dosage: 600 MG (ONCE)
     Route: 065
     Dates: start: 201911, end: 201911
  8. ILARIS [Suspect]
     Active Substance: CANAKINUMAB
     Dosage: 300 MG (EVERY 8 WEEKS)
     Route: 065
     Dates: end: 201911
  9. ILARIS [Suspect]
     Active Substance: CANAKINUMAB
     Dosage: 300 MG (EVERY 8 WEEKS)
     Route: 065
     Dates: end: 201911

REACTIONS (10)
  - Fatigue [Unknown]
  - Vulvovaginal candidiasis [Recovered/Resolved]
  - Pyrexia [Not Recovered/Not Resolved]
  - Therapeutic product effect decreased [Not Recovered/Not Resolved]
  - Cryopyrin associated periodic syndrome [Not Recovered/Not Resolved]
  - Eyelid oedema [Unknown]
  - C-reactive protein increased [Unknown]
  - Streptococcal infection [Recovered/Resolved]
  - Arthralgia [Unknown]
  - Pain [Not Recovered/Not Resolved]

NARRATIVE: CASE EVENT DATE: 20190426
